FAERS Safety Report 21064339 (Version 3)
Quarter: 2023Q1

REPORT INFORMATION
  Report Type: Report from Study
  Country: US (occurrence: None)
  Receive Date: 20220711
  Receipt Date: 20230327
  Transmission Date: 20230418
  Serious: Yes (Other)
  Sender: FDA-Public Use
  Company Number: US-ROCHE-3130837

PATIENT
  Age: 75 Year
  Sex: Male
  Weight: 77 kg

DRUGS (20)
  1. RANIBIZUMAB [Suspect]
     Active Substance: RANIBIZUMAB
     Indication: Neovascular age-related macular degeneration
     Dosage: DOSE OF STUDY DRUG FIRST ADMINISTERED 100 MG/ML
     Route: 050
     Dates: start: 20201209
  2. RANIBIZUMAB [Suspect]
     Active Substance: RANIBIZUMAB
  3. RANIBIZUMAB [Suspect]
     Active Substance: RANIBIZUMAB
  4. RANIBIZUMAB [Suspect]
     Active Substance: RANIBIZUMAB
  5. RANIBIZUMAB [Suspect]
     Active Substance: RANIBIZUMAB
  6. RANIBIZUMAB [Concomitant]
     Active Substance: RANIBIZUMAB
     Dosage: DOSE OF STUDY DRUG FIRST ADMINISTERED 10 MG/ML
     Route: 050
     Dates: start: 20201209
  7. FINASTERIDE [Concomitant]
     Active Substance: FINASTERIDE
     Indication: Urinary retention
     Route: 048
     Dates: start: 2018
  8. CRESTOR [Concomitant]
     Active Substance: ROSUVASTATIN CALCIUM
     Indication: Blood cholesterol
     Route: 048
     Dates: start: 2012
  9. FLONASE [Concomitant]
     Active Substance: FLUTICASONE PROPIONATE
     Indication: Seasonal allergy
     Dates: start: 2006
  10. CLOBETASOL [Concomitant]
     Active Substance: CLOBETASOL
     Indication: Dry skin
     Route: 061
     Dates: start: 2017
  11. FISH OIL [Concomitant]
     Active Substance: FISH OIL
     Route: 048
     Dates: start: 2001
  12. AREDS 2 FORMULA [Concomitant]
     Route: 048
     Dates: start: 2018
  13. TYLENOL [Concomitant]
     Active Substance: ACETAMINOPHEN
     Indication: Arthritis
     Route: 048
     Dates: start: 20181128
  14. ASPIRIN [Concomitant]
     Active Substance: ASPIRIN
     Route: 048
     Dates: start: 20190202
  15. UROXATRAL [Concomitant]
     Active Substance: ALFUZOSIN HYDROCHLORIDE
     Indication: Prostatomegaly
     Route: 048
     Dates: start: 202112
  16. TRAMADOL [Concomitant]
     Active Substance: TRAMADOL
     Indication: Abdominal pain upper
     Route: 048
     Dates: start: 20220106
  17. ALFUZOSIN [Concomitant]
     Active Substance: ALFUZOSIN
     Indication: Urinary retention
     Route: 048
     Dates: start: 2016
  18. LANREOTIDE ACETATE [Concomitant]
     Active Substance: LANREOTIDE ACETATE
     Indication: Hepatic neuroendocrine tumour
     Route: 030
     Dates: start: 20210131
  19. CELEBREX [Concomitant]
     Active Substance: CELECOXIB
     Route: 048
     Dates: start: 20220131
  20. MELOXICAM [Concomitant]
     Active Substance: MELOXICAM
     Indication: Arthralgia
     Route: 048
     Dates: start: 20220309

REACTIONS (2)
  - Device issue [Unknown]
  - No adverse event [Unknown]

NARRATIVE: CASE EVENT DATE: 20220628
